FAERS Safety Report 7068217-8 (Version None)
Quarter: 2010Q4

REPORT INFORMATION
  Report Type: 
  Country: None (occurrence: None)
  Receive Date: 20101020
  Receipt Date: 20101006
  Transmission Date: 20110411
  Serious: Yes (Disabling, Other)
  Sender: FDA-Public Use
  Company Number: GB-003857

PATIENT
  Age: 86 Year
  Sex: Female

DRUGS (4)
  1. MINIRIN [Suspect]
     Indication: STRESS URINARY INCONTINENCE
     Dosage: 200 UG QD ORAL
     Route: 048
     Dates: start: 20100423, end: 20100430
  2. CHLORDIAZEPOXIDE [Concomitant]
  3. LATANOPROST [Concomitant]
  4. TRIMETHOPRIM [Concomitant]

REACTIONS (6)
  - ABNORMAL BEHAVIOUR [None]
  - HALLUCINATIONS, MIXED [None]
  - HEADACHE [None]
  - SKIN REACTION [None]
  - TREMOR [None]
  - VOMITING [None]
